FAERS Safety Report 11792714 (Version 1)
Quarter: 2015Q4

REPORT INFORMATION
  Report Type: Spontaneous
  Country: PH (occurrence: None)
  Receive Date: 20151130
  Receipt Date: 20151130
  Transmission Date: 20160305
  Serious: Yes (Other)
  Sender: FDA-Public Use
  Company Number: 2015R1-106725

PATIENT
  Age: 11 Year
  Sex: Female

DRUGS (4)
  1. L-ASPARAGINASE (L-ASPARAGINASE) UNKNOWN [Suspect]
     Active Substance: ASPARAGINASE
     Indication: ACUTE LYMPHOCYTIC LEUKAEMIA
     Dosage: 6000 U/M^2, 3 TIMES A WEEK, UNKNOWN
  2. PREDNISONE (PREDNISONE) UNKNOWN [Suspect]
     Active Substance: PREDNISONE
     Indication: ACUTE LYMPHOCYTIC LEUKAEMIA
     Dosage: 60 MG/KG/M^2
  3. METHOTREXATE [Concomitant]
     Active Substance: METHOTREXATE
  4. VINCRISTINE [Concomitant]
     Active Substance: VINCRISTINE

REACTIONS (2)
  - Drug interaction [None]
  - Diabetes mellitus [None]
